FAERS Safety Report 4406858-4 (Version None)
Quarter: 2004Q3

REPORT INFORMATION
  Report Type: 
  Country: None (occurrence: None)
  Receive Date: 20040715
  Receipt Date: 20040702
  Transmission Date: 20050211
  Serious: Yes (Death, Hospitalization, Disabling)
  Sender: FDA-Public Use
  Company Number: JP-JNJFOC-20040700723

PATIENT
  Age: 61 Year
  Sex: Female
  Weight: 60 kg

DRUGS (9)
  1. REMICADE [Suspect]
     Indication: RHEUMATOID ARTHRITIS
     Dosage: 3 MG/KG, INTRAVENOUS
     Route: 042
     Dates: start: 20040305
  2. REMICADE [Suspect]
     Indication: RHEUMATOID ARTHRITIS
     Dosage: 3 MG/KG, INTRAVENOUS
     Route: 042
     Dates: start: 20040318
  3. REMICADE [Suspect]
     Indication: RHEUMATOID ARTHRITIS
     Dosage: 3 MG/KG, INTRAVENOUS
     Route: 042
     Dates: start: 20040402
  4. REMICADE [Suspect]
     Indication: RHEUMATOID ARTHRITIS
     Dosage: 3 MG/KG, INTRAVENOUS
     Route: 042
     Dates: start: 20040610
  5. RHEUMATREX (CAPSULES) METHOTREXATE SODIUM [Concomitant]
  6. AZULFIDINE [Concomitant]
  7. LOXONIN (LOXOPROFEN SODIUM) [Concomitant]
  8. BONARON (ALENDRONATE SODIUM) [Concomitant]
  9. MUCOSTA (REBAMIPIDE) [Concomitant]

REACTIONS (15)
  - BLOOD PRESSURE DECREASED [None]
  - CARDIAC ARREST [None]
  - DELIRIUM [None]
  - DEPRESSED LEVEL OF CONSCIOUSNESS [None]
  - ENCEPHALITIS HERPES [None]
  - HEADACHE [None]
  - HYPOPNOEA [None]
  - IMMUNOLOGY TEST ABNORMAL [None]
  - LUNG DISORDER [None]
  - NAUSEA [None]
  - PSYCHOTIC DISORDER [None]
  - RESPIRATORY ARREST [None]
  - RESPIRATORY TRACT INFECTION [None]
  - UNRESPONSIVE TO PAIN STIMULI [None]
  - VOMITING [None]
